FAERS Safety Report 4651376-1 (Version None)
Quarter: 2005Q2

REPORT INFORMATION
  Report Type: 
  Country: None (occurrence: None)
  Receive Date: 20050404
  Receipt Date: 20041118
  Transmission Date: 20051028
  Serious: No
  Sender: FDA-Public Use
  Company Number: USA041184097

PATIENT
  Age: 24 Year
  Sex: Male

DRUGS (2)
  1. CYMBALTA [Suspect]
     Indication: BIPOLAR II DISORDER
     Dosage: 60 MG
  2. RISPERDAL [Concomitant]

REACTIONS (2)
  - DRUG INTERACTION [None]
  - FATIGUE [None]
